FAERS Safety Report 4786710-5 (Version None)
Quarter: 2005Q4

REPORT INFORMATION
  Report Type: 
  Country: None (occurrence: None)
  Receive Date: 20051004
  Receipt Date: 20050912
  Transmission Date: 20060501
  Serious: Yes (Hospitalization)
  Sender: FDA-Public Use
  Company Number: ZA-SOLVAY-00305002934

PATIENT
  Age: 28 Year
  Sex: Female

DRUGS (5)
  1. REMERON [Concomitant]
     Indication: POSTPARTUM DEPRESSION
     Dosage: DAILY DOSE:  UNKNOWN
     Route: 065
     Dates: start: 20050908, end: 20050910
  2. LUVOX 100 [Suspect]
     Indication: POSTPARTUM DEPRESSION
     Dosage: DAILY DOSE: 50 MILLIGRAM(S)
     Route: 048
     Dates: start: 20050815, end: 20050816
  3. LUVOX 100 [Suspect]
     Dosage: DAILY DOSE: 100 MILLIGRAM(S)
     Route: 048
     Dates: start: 20050817, end: 20050907
  4. LUVOX 100 [Suspect]
     Dosage: DAILY DOSE: 300 MILLIGRAM(S), 100 MG IN THE MORNING, 200 MG IN THE EVENING
     Route: 048
     Dates: start: 20050908, end: 20050911
  5. RISPERDAL [Concomitant]
     Indication: POSTPARTUM DEPRESSION
     Dosage: DAILY DOSE:  UNKNOWN
     Route: 065
     Dates: start: 20050908, end: 20050910

REACTIONS (3)
  - COGNITIVE DISORDER [None]
  - HYPOAESTHESIA ORAL [None]
  - TONGUE OEDEMA [None]
